FAERS Safety Report 17517424 (Version 2)
Quarter: 2020Q2

REPORT INFORMATION
  Report Type: Spontaneous
  Country: US (occurrence: US)
  Receive Date: 20200309
  Receipt Date: 20200410
  Transmission Date: 20200713
  Serious: No
  Sender: FDA-Public Use
  Company Number: US-SA-2020SA059514

PATIENT
  Age: 49 Year
  Sex: Female

DRUGS (6)
  1. BOTOX [Concomitant]
     Active Substance: ONABOTULINUMTOXINA
  2. LATISSE [Concomitant]
     Active Substance: BIMATOPROST
  3. DUPIXENT [Suspect]
     Active Substance: DUPILUMAB
     Indication: DERMATITIS ATOPIC
     Dosage: 300 MG, QOW
     Route: 058
     Dates: start: 20191016
  4. CLOBETASOL [Concomitant]
     Active Substance: CLOBETASOL
  5. PREDNISONE. [Concomitant]
     Active Substance: PREDNISONE
  6. IMURAN [Concomitant]
     Active Substance: AZATHIOPRINE

REACTIONS (2)
  - Dry eye [Not Recovered/Not Resolved]
  - Injection site reaction [Not Recovered/Not Resolved]
